FAERS Safety Report 20548632 (Version 1)
Quarter: 2022Q1

REPORT INFORMATION
  Report Type: Spontaneous
  Country: US (occurrence: None)
  Receive Date: 20220303
  Receipt Date: 20220303
  Transmission Date: 20220424
  Serious: Yes (Other)
  Sender: FDA-Public Use
  Company Number: None

PATIENT
  Age: 62 Year
  Weight: 99 kg

DRUGS (1)
  1. EVUSHELD [Suspect]
     Active Substance: CILGAVIMAB\TIXAGEVIMAB
     Indication: Immunodeficiency
     Dosage: FREQUENCY : ONCE;?
     Route: 030
     Dates: start: 20220301, end: 20220301

REACTIONS (8)
  - Nausea [None]
  - Chest pain [None]
  - Heart rate irregular [None]
  - Fatigue [None]
  - Chills [None]
  - Blood pressure increased [None]
  - Paraesthesia [None]
  - Chest discomfort [None]

NARRATIVE: CASE EVENT DATE: 20220301
